FAERS Safety Report 4562206-0 (Version None)
Quarter: 2005Q1

REPORT INFORMATION
  Report Type: 
  Country: None (occurrence: None)
  Receive Date: 20050121
  Receipt Date: 20050111
  Transmission Date: 20050727
  Serious: Yes (Other)
  Sender: FDA-Public Use
  Company Number: 2004112941

PATIENT
  Age: 45 Year
  Sex: Male
  Weight: 77.1115 kg

DRUGS (2)
  1. CYTOTEC [Suspect]
     Indication: HEREDITARY DISORDER
     Dosage: 800 MG (200 MG, 1 IN 4 D), ORAL
     Route: 048
     Dates: start: 20030101
  2. SUCRALFATE [Concomitant]

REACTIONS (2)
  - HAEMATURIA [None]
  - RED BLOOD CELLS SEMEN POSITIVE [None]
